FAERS Safety Report 4610364-1 (Version None)
Quarter: 2005Q1

REPORT INFORMATION
  Report Type: 
  Country: None (occurrence: None)
  Receive Date: 20050314
  Receipt Date: 20050228
  Transmission Date: 20050727
  Serious: Yes (Other)
  Sender: FDA-Public Use
  Company Number: 2005032872

PATIENT
  Age: 52 Year
  Sex: Female
  Weight: 69.4003 kg

DRUGS (5)
  1. CELEBREX [Suspect]
     Indication: PERIARTHRITIS
     Dosage: 200 MG (200 MG, 1 IN 1 D), ORAL
     Route: 048
  2. FOLIC ACID [Concomitant]
  3. MULTIVITAMINS (ASCORBIC ACID, ERGOCALCIFEROL, FOLIC ACID, NICOTINAMIDE [Concomitant]
  4. ASPIRIN [Concomitant]
  5. CALCIUM WITH VITAMIN D (CALCIUM PHOSPHATE, CALCIUM SODIUM LACTATE, ERG [Concomitant]

REACTIONS (3)
  - MITRAL VALVE PROLAPSE [None]
  - PALPITATIONS [None]
  - THERAPY NON-RESPONDER [None]
